FAERS Safety Report 20913301 (Version 2)
Quarter: 2022Q2

REPORT INFORMATION
  Report Type: Spontaneous
  Country: US (occurrence: US)
  Receive Date: 20220603
  Receipt Date: 20220613
  Transmission Date: 20220720
  Serious: Yes (Other)
  Sender: FDA-Public Use
  Company Number: US-TAKEDA-2018TUS032230

PATIENT
  Age: 53 Year
  Sex: Female

DRUGS (143)
  1. PANTOPRAZOLE [Suspect]
     Active Substance: PANTOPRAZOLE
     Indication: Gastrooesophageal reflux disease
     Dosage: 40 MG
  2. DEXILANT [Suspect]
     Active Substance: DEXLANSOPRAZOLE
     Indication: Gastrooesophageal reflux disease
     Dosage: 60 MILLIGRAM
     Route: 048
     Dates: start: 200910, end: 201005
  3. DEXILANT [Suspect]
     Active Substance: DEXLANSOPRAZOLE
     Dosage: 60 MG
     Dates: start: 201005
  4. NEXIUM [Suspect]
     Active Substance: ESOMEPRAZOLE MAGNESIUM
     Indication: Gastrooesophageal reflux disease
     Dosage: 40 MG
     Dates: start: 200605
  5. NEXIUM [Suspect]
     Active Substance: ESOMEPRAZOLE MAGNESIUM
     Dosage: 40 MG
     Dates: start: 201101, end: 201703
  6. ESOMEPRAZOLE MAGNESIUM [Suspect]
     Active Substance: ESOMEPRAZOLE MAGNESIUM
     Indication: Gastrooesophageal reflux disease
     Dosage: 20 MG
     Dates: start: 201601
  7. KAPIDEX [Suspect]
     Active Substance: DEXLANSOPRAZOLE
     Indication: Gastrooesophageal reflux disease
     Dosage: 60 MG
     Dates: start: 200910, end: 201005
  8. AMITRIPTYLINE [Concomitant]
     Active Substance: AMITRIPTYLINE
     Indication: Migraine
     Dosage: UNK
     Dates: start: 201109
  9. AMOXICILLIN [Concomitant]
     Active Substance: AMOXICILLIN
     Dosage: UNK
     Dates: start: 200711
  10. AMOXICILLIN [Concomitant]
     Active Substance: AMOXICILLIN
     Dosage: UNK
     Dates: start: 201011
  11. AMOXICILLIN [Concomitant]
     Active Substance: AMOXICILLIN
     Dosage: UNK
     Dates: start: 201101, end: 201105
  12. AMOXICILLIN [Concomitant]
     Active Substance: AMOXICILLIN
     Dosage: UNK
     Dates: start: 201203
  13. AMOXICILLIN [Concomitant]
     Active Substance: AMOXICILLIN
     Dosage: UNK
     Dates: start: 201212, end: 201301
  14. AMOXICILLIN [Concomitant]
     Active Substance: AMOXICILLIN
     Dosage: UNK
     Dates: start: 201511
  15. ATORVASTATIN [Concomitant]
     Active Substance: ATORVASTATIN
     Indication: Hypercholesterolaemia
     Dosage: UNK
     Dates: start: 201607, end: 201703
  16. AVELOX [Concomitant]
     Active Substance: MOXIFLOXACIN HYDROCHLORIDE
     Dosage: UNK
     Dates: start: 201107, end: 201108
  17. AZITHROMYCIN [Concomitant]
     Active Substance: AZITHROMYCIN
     Dosage: UNK
     Dates: start: 200909
  18. AZITHROMYCIN [Concomitant]
     Active Substance: AZITHROMYCIN
     Dosage: UNK
     Dates: start: 201003
  19. AZITHROMYCIN [Concomitant]
     Active Substance: AZITHROMYCIN
     Dosage: UNK
     Dates: start: 201205
  20. AZITHROMYCIN [Concomitant]
     Active Substance: AZITHROMYCIN
     Dosage: UNK
     Dates: start: 201211
  21. AZITHROMYCIN [Concomitant]
     Active Substance: AZITHROMYCIN
     Dosage: UNK
     Dates: start: 201302
  22. AZITHROMYCIN [Concomitant]
     Active Substance: AZITHROMYCIN
     Dosage: UNK
     Dates: start: 201603
  23. AZITHROMYCIN [Concomitant]
     Active Substance: AZITHROMYCIN
     Dosage: UNK
     Dates: start: 201610
  24. CEFUROXIME [Concomitant]
     Active Substance: CEFUROXIME
     Dosage: UNK
     Dates: start: 201212
  25. CIPROFLOXACIN HYDROCHLORIDE [Concomitant]
     Active Substance: CIPROFLOXACIN HYDROCHLORIDE
     Dosage: UNK
     Dates: start: 201701, end: 201703
  26. CIPROFLOXACIN HYDROCHLORIDE [Concomitant]
     Active Substance: CIPROFLOXACIN HYDROCHLORIDE
     Dosage: UNK
     Dates: start: 200908
  27. ERYTHROMYCIN [Concomitant]
     Active Substance: ERYTHROMYCIN
     Dosage: UNK
     Dates: start: 201011
  28. FUROSEMIDE [Concomitant]
     Active Substance: FUROSEMIDE
     Dosage: UNK
     Dates: start: 200909, end: 201311
  29. HYDROCHLOROTHIAZIDE [Concomitant]
     Active Substance: HYDROCHLOROTHIAZIDE
     Indication: Hypertension
     Dosage: UNK
     Dates: start: 201508
  30. HYDROCHLOROTHIAZIDE [Concomitant]
     Active Substance: HYDROCHLOROTHIAZIDE
     Dosage: UNK
     Dates: start: 201609, end: 201703
  31. MELOXICAM [Concomitant]
     Active Substance: MELOXICAM
     Indication: Osteoarthritis
     Dosage: UNK
     Dates: start: 201506, end: 201702
  32. MINOCYCLINE [Concomitant]
     Active Substance: MINOCYCLINE HYDROCHLORIDE
     Dosage: UNK
     Dates: start: 201305
  33. MOXATAG ER [Concomitant]
     Dosage: UNK
     Dates: start: 201002
  34. MOXEZA [Concomitant]
     Active Substance: MOXIFLOXACIN HYDROCHLORIDE
     Dosage: UNK
     Dates: start: 201310
  35. MOXEZA [Concomitant]
     Active Substance: MOXIFLOXACIN HYDROCHLORIDE
     Dosage: UNK
     Dates: start: 201402
  36. NAPROXEN [Concomitant]
     Active Substance: NAPROXEN
     Indication: Analgesic therapy
     Dosage: UNK
     Dates: start: 201108
  37. NAPROXEN [Concomitant]
     Active Substance: NAPROXEN
     Dosage: UNK
     Dates: start: 201309, end: 201312
  38. NAPROXEN [Concomitant]
     Active Substance: NAPROXEN
     Dosage: UNK
     Dates: start: 201702, end: 201703
  39. PENICILLIN V POTASSIUM [Concomitant]
     Active Substance: PENICILLIN V POTASSIUM
     Dosage: UNK
     Dates: start: 201410
  40. POLYMYXIN [Concomitant]
     Active Substance: POLYMYXIN
     Dosage: UNK
     Dates: start: 200709
  41. SULFAMETHOXAZOLE AND TRIMETHOPRIM [Concomitant]
     Active Substance: SULFAMETHOXAZOLE\TRIMETHOPRIM
     Dosage: UNK
     Dates: start: 200801
  42. SULFAMETHOXAZOLE AND TRIMETHOPRIM [Concomitant]
     Active Substance: SULFAMETHOXAZOLE\TRIMETHOPRIM
     Dosage: UNK
     Dates: start: 201305
  43. SULFAMETHOXAZOLE AND TRIMETHOPRIM [Concomitant]
     Active Substance: SULFAMETHOXAZOLE\TRIMETHOPRIM
     Dosage: UNK
     Dates: start: 201407, end: 201407
  44. SULFAMETHOXAZOLE AND TRIMETHOPRIM [Concomitant]
     Active Substance: SULFAMETHOXAZOLE\TRIMETHOPRIM
     Dosage: UNK
     Dates: start: 201505
  45. SUPRAX [Concomitant]
     Active Substance: CEFIXIME
     Dosage: UNK
     Dates: start: 201103, end: 201107
  46. TOBRAMYCIN AND DEXAMETHASONE [Concomitant]
     Active Substance: DEXAMETHASONE\TOBRAMYCIN
     Dosage: UNK
     Dates: start: 201406
  47. TOBRAMYCIN AND DEXAMETHASONE [Concomitant]
     Active Substance: DEXAMETHASONE\TOBRAMYCIN
     Dosage: UNK
     Dates: start: 201511, end: 201512
  48. TRAMADOL HCL [Concomitant]
     Active Substance: TRAMADOL HYDROCHLORIDE
     Indication: Analgesic therapy
     Dosage: UNK
     Dates: start: 200801, end: 201511
  49. TRIAMTERENE AND HYDROCHLOROTHIAZIDE [Concomitant]
     Active Substance: HYDROCHLOROTHIAZIDE\TRIAMTERENE
     Indication: Hypertension
     Dosage: UNK
     Dates: start: 201002, end: 201301
  50. VIGAMOX [Concomitant]
     Active Substance: MOXIFLOXACIN HYDROCHLORIDE
     Dosage: UNK
     Dates: start: 201107
  51. VIGAMOX [Concomitant]
     Active Substance: MOXIFLOXACIN HYDROCHLORIDE
     Dosage: UNK
     Dates: start: 201201
  52. VIGAMOX [Concomitant]
     Active Substance: MOXIFLOXACIN HYDROCHLORIDE
     Dosage: UNK
     Dates: start: 201212
  53. ACETAMINOPHEN AND CODEINE [Concomitant]
     Active Substance: ACETAMINOPHEN\CODEINE PHOSPHATE
     Indication: Analgesic therapy
     Dosage: UNK
     Dates: start: 2016, end: 2017
  54. ACETAMINOPHEN AND CODEINE [Concomitant]
     Active Substance: ACETAMINOPHEN\CODEINE PHOSPHATE
     Dosage: UNK
     Dates: start: 201602, end: 2017
  55. ACETAMINOPHEN AND CODEINE [Concomitant]
     Active Substance: ACETAMINOPHEN\CODEINE PHOSPHATE
     Dosage: UNK
     Dates: start: 201706, end: 201707
  56. ALPRAZOLAM [Concomitant]
     Active Substance: ALPRAZOLAM
     Indication: Anxiety
     Dosage: UNK
     Dates: start: 200909
  57. AZASITE [Concomitant]
     Active Substance: AZITHROMYCIN MONOHYDRATE
     Dosage: UNK
     Dates: start: 201701
  58. BACLOFEN [Concomitant]
     Active Substance: BACLOFEN
     Indication: Muscle relaxant therapy
     Dosage: UNK
     Dates: start: 201004
  59. BECONASE AQ [Concomitant]
     Active Substance: BECLOMETHASONE DIPROPIONATE MONOHYDRATE
     Indication: Seasonal allergy
     Dosage: UNK
     Dates: start: 2015, end: 2017
  60. BROMFED DM [Concomitant]
     Active Substance: BROMPHENIRAMINE MALEATE\DEXTROMETHORPHAN HYDROBROMIDE\PSEUDOEPHEDRINE HYDROCHLORIDE
     Indication: Antitussive therapy
     Dosage: UNK
     Dates: start: 2015, end: 2016
  61. BROMFED DM [Concomitant]
     Active Substance: BROMPHENIRAMINE MALEATE\DEXTROMETHORPHAN HYDROBROMIDE\PSEUDOEPHEDRINE HYDROCHLORIDE
     Dosage: UNK
     Dates: start: 201603
  62. BROMFED DM [Concomitant]
     Active Substance: BROMPHENIRAMINE MALEATE\DEXTROMETHORPHAN HYDROBROMIDE\PSEUDOEPHEDRINE HYDROCHLORIDE
     Dosage: UNK
     Dates: start: 201610, end: 201612
  63. BROVEX PED DM LIQUID [Concomitant]
     Indication: Seasonal allergy
     Dosage: UNK
     Dates: start: 201111
  64. BUSPIRONE HCL [Concomitant]
     Active Substance: BUSPIRONE HYDROCHLORIDE
     Indication: Anxiety
     Dosage: UNK
     Dates: start: 2011, end: 2018
  65. BUTALBITAL APAP CAFFEINE PLUS [Concomitant]
     Indication: Migraine
     Dosage: UNK
     Dates: start: 200909
  66. CARAFATE [Concomitant]
     Active Substance: SUCRALFATE
     Indication: Gastrectomy
     Dosage: UNK
     Dates: start: 201706, end: 201708
  67. CARISOPRODOL [Concomitant]
     Active Substance: CARISOPRODOL
     Indication: Muscle relaxant therapy
     Dosage: UNK
     Dates: start: 2008, end: 2015
  68. CEPHALEXIN [Concomitant]
     Active Substance: CEPHALEXIN
     Dosage: UNK
     Dates: start: 2011, end: 2012
  69. CEPHALEXIN [Concomitant]
     Active Substance: CEPHALEXIN
     Dosage: UNK
     Dates: start: 2016, end: 2017
  70. CETIRIZINE HCL [Concomitant]
     Active Substance: CETIRIZINE HYDROCHLORIDE
     Indication: Seasonal allergy
     Dosage: UNK
     Dates: start: 2012, end: 2018
  71. CLARITHROMYCIN [Concomitant]
     Active Substance: CLARITHROMYCIN
     Dosage: UNK
     Dates: start: 201304
  72. CLINDAMYCIN HYDROCHLORIDE [Concomitant]
     Active Substance: CLINDAMYCIN HYDROCHLORIDE
     Dosage: UNK
     Dates: start: 201410
  73. CP DEC DM [Concomitant]
     Indication: Seasonal allergy
     Dosage: UNK
     Dates: start: 200710
  74. STOOL SOFTENER (DOCUSATE) [Concomitant]
     Active Substance: DOCUSATE
     Indication: Constipation
     Dosage: UNK
     Dates: start: 201212
  75. CYCLOBENZAPRINE [Concomitant]
     Active Substance: CYCLOBENZAPRINE
     Indication: Muscle relaxant therapy
     Dosage: UNK
     Dates: start: 201103, end: 201110
  76. DETROL LA [Concomitant]
     Active Substance: TOLTERODINE TARTRATE
     Indication: Bladder disorder
     Dosage: UNK
     Dates: start: 200910, end: 201003
  77. DETROL LA [Concomitant]
     Active Substance: TOLTERODINE TARTRATE
     Dosage: UNK
     Dates: start: 201205
  78. DIAZEPAM [Concomitant]
     Active Substance: DIAZEPAM
     Indication: Anxiety
     Dosage: UNK
     Dates: start: 201010
  79. DIPHENHYDRAMINE [Concomitant]
     Active Substance: DIPHENHYDRAMINE
     Indication: Multiple allergies
     Dosage: UNK
     Dates: start: 201402
  80. ATROPINE\DIPHENOXYLATE [Concomitant]
     Active Substance: ATROPINE\DIPHENOXYLATE
     Indication: Diarrhoea
     Dosage: UNK
     Dates: start: 201402
  81. DOCUSATE SODIUM [Concomitant]
     Active Substance: DOCUSATE SODIUM
     Indication: Constipation
     Dosage: UNK
     Dates: start: 201303, end: 201304
  82. DOK [Concomitant]
     Active Substance: DOCUSATE SODIUM
     Indication: Constipation
     Dosage: UNK
     Dates: start: 201602
  83. FEXOFENADINE HCL [Concomitant]
     Active Substance: FEXOFENADINE HYDROCHLORIDE
     Indication: Seasonal allergy
     Dosage: UNK
     Dates: start: 201407
  84. FLUCONAZOLE [Concomitant]
     Active Substance: FLUCONAZOLE
     Dosage: UNK
     Dates: start: 201306
  85. GABAPENTIN [Concomitant]
     Active Substance: GABAPENTIN
     Indication: Analgesic therapy
     Dosage: UNK
     Dates: start: 201012
  86. ACETAMINOPHEN\HYDROCODONE [Concomitant]
     Active Substance: ACETAMINOPHEN\HYDROCODONE
     Indication: Analgesic therapy
     Dosage: UNK
     Dates: start: 201010, end: 201710
  87. HYDROCORTISONE [Concomitant]
     Active Substance: HYDROCORTISONE
     Dosage: UNK
     Dates: start: 201411
  88. IBUPROFEN [Concomitant]
     Active Substance: IBUPROFEN
     Indication: Analgesic therapy
     Dosage: UNK
     Dates: start: 201011, end: 2018
  89. LEVALBUTEROL HYDROCHLORIDE [Concomitant]
     Active Substance: LEVALBUTEROL HYDROCHLORIDE
     Indication: Asthma
     Dosage: UNK
     Dates: start: 201402, end: 201411
  90. LEVOTHYROXINE SODIUM [Concomitant]
     Active Substance: LEVOTHYROXINE SODIUM
     Indication: Hypothyroidism
     Dosage: UNK
     Dates: start: 200912
  91. LIDOCAINE [Concomitant]
     Active Substance: LIDOCAINE
     Indication: Analgesic therapy
     Dosage: UNK
     Dates: start: 201607
  92. LIDODERM [Concomitant]
     Active Substance: LIDOCAINE
     Indication: Analgesic therapy
     Dosage: UNK
     Dates: start: 201312, end: 201402
  93. LORATADINE [Concomitant]
     Active Substance: LORATADINE
     Indication: Seasonal allergy
     Dosage: UNK
     Dates: start: 201112
  94. LYRICA [Concomitant]
     Active Substance: PREGABALIN
     Indication: Fibromyalgia
     Dosage: UNK
     Dates: start: 201105, end: 2018
  95. MAXARON FORTE [Concomitant]
     Active Substance: ASCORBIC ACID\IRON\LEVOMEFOLATE CALCIUM\METHYLCOBALAMIN
     Indication: Vitamin supplementation
     Dosage: UNK
     Dates: start: 201003, end: 201007
  96. MECLIZINE [Concomitant]
     Active Substance: MECLIZINE HYDROCHLORIDE
     Indication: Motion sickness
     Dosage: UNK
     Dates: start: 201402
  97. METFORMIN HYDROCHLORIDE [Concomitant]
     Active Substance: METFORMIN HYDROCHLORIDE
     Indication: Diabetes mellitus
     Dosage: UNK
     Dates: start: 200910, end: 201610
  98. METHOCARBAMOL [Concomitant]
     Active Substance: METHOCARBAMOL
     Indication: Back pain
     Dosage: UNK
     Dates: start: 2011
  99. METHYLPREDNISOLONE [Concomitant]
     Active Substance: METHYLPREDNISOLONE
     Dosage: UNK
     Dates: start: 201105
  100. MONTELUKAST SODIUM [Concomitant]
     Active Substance: MONTELUKAST SODIUM
     Indication: Asthma
     Dosage: UNK
     Dates: start: 201210, end: 201703
  101. MUPIROCIN [Concomitant]
     Active Substance: MUPIROCIN
     Dosage: UNK
     Dates: start: 201410, end: 201412
  102. MUPIROCIN [Concomitant]
     Active Substance: MUPIROCIN
     Dosage: UNK
     Dates: start: 201502
  103. MUPIROCIN [Concomitant]
     Active Substance: MUPIROCIN
     Dosage: UNK
     Dates: start: 201703
  104. NASONEX [Concomitant]
     Active Substance: MOMETASONE FUROATE
     Indication: Seasonal allergy
     Dosage: UNK
     Dates: start: 201403
  105. NORTRIPTYLINE HYDROCHLORIDE [Concomitant]
     Active Substance: NORTRIPTYLINE HYDROCHLORIDE
     Indication: Depression
     Dosage: UNK
     Dates: start: 201003, end: 201004
  106. PATADAY [Concomitant]
     Active Substance: OLOPATADINE HYDROCHLORIDE
     Indication: Seasonal allergy
     Dosage: UNK
     Dates: start: 201103
  107. PATANASE [Concomitant]
     Active Substance: OLOPATADINE HYDROCHLORIDE
     Indication: Seasonal allergy
     Dosage: UNK
     Dates: start: 201112
  108. PAZEO [Concomitant]
     Active Substance: OLOPATADINE HYDROCHLORIDE
     Indication: Seasonal allergy
     Dosage: UNK
     Dates: start: 201607
  109. PHENTERMINE HYDROCHLORIDE [Concomitant]
     Active Substance: PHENTERMINE HYDROCHLORIDE
     Indication: Weight decreased
     Dosage: UNK
     Dates: start: 201306, end: 201412
  110. PILOCARPINE HYDROCHLORIDE [Concomitant]
     Active Substance: PILOCARPINE HYDROCHLORIDE
     Indication: Dry mouth
     Dosage: UNK
     Dates: start: 201201, end: 201312
  111. PILOCARPINE HYDROCHLORIDE [Concomitant]
     Active Substance: PILOCARPINE HYDROCHLORIDE
     Dosage: UNK
     Dates: start: 201611, end: 201703
  112. PREDNISONE [Concomitant]
     Active Substance: PREDNISONE
     Dosage: UNK
     Dates: start: 201303
  113. PREDNISONE [Concomitant]
     Active Substance: PREDNISONE
     Dosage: UNK
     Dates: start: 201402
  114. PROAIR HFA [Concomitant]
     Active Substance: ALBUTEROL SULFATE
     Indication: Asthma
     Dosage: UNK
     Dates: start: 201205
  115. PROAIR HFA [Concomitant]
     Active Substance: ALBUTEROL SULFATE
     Dosage: UNK
     Dates: start: 201402, end: 201408
  116. PROMETHAZINE DM [Concomitant]
     Active Substance: DEXTROMETHORPHAN HYDROBROMIDE\PROMETHAZINE HYDROCHLORIDE
     Indication: Seasonal allergy
     Dosage: UNK
     Dates: start: 201102, end: 201109
  117. PROPOXYPHEN/APAP [Concomitant]
     Indication: Analgesic therapy
     Dosage: UNK
     Dates: start: 201005, end: 201009
  118. SERTRALINE HYDROCHLORIDE [Concomitant]
     Active Substance: SERTRALINE HYDROCHLORIDE
     Indication: Depression
     Dosage: UNK
     Dates: start: 201309, end: 201401
  119. SERTRALINE HYDROCHLORIDE [Concomitant]
     Active Substance: SERTRALINE HYDROCHLORIDE
     Dosage: UNK
     Dates: start: 201607, end: 201703
  120. SILDEC PE DM [Concomitant]
     Active Substance: CHLORPHENIRAMINE MALEATE\DEXTROMETHORPHAN HYDROBROMIDE\PHENYLEPHRINE HYDROCHLORIDE
     Indication: Seasonal allergy
     Dosage: UNK
     Dates: start: 201011
  121. SINGULAIR [Concomitant]
     Active Substance: MONTELUKAST SODIUM
     Indication: Asthma
     Dosage: UNK
     Dates: start: 201102, end: 201209
  122. SOMA [Concomitant]
     Active Substance: CARISOPRODOL
     Indication: Muscle relaxant therapy
     Dosage: UNK
     Dates: start: 200911
  123. SYMBICORT [Concomitant]
     Active Substance: BUDESONIDE\FORMOTEROL FUMARATE DIHYDRATE
     Indication: Asthma
     Dosage: UNK
     Dates: start: 201009, end: 201703
  124. SYNTHROID [Concomitant]
     Active Substance: LEVOTHYROXINE SODIUM
     Indication: Hypothyroidism
     Dosage: UNK
  125. TIZANIDINE HYDROCHLORIDE [Concomitant]
     Active Substance: TIZANIDINE HYDROCHLORIDE
     Indication: Muscle relaxant therapy
     Dosage: UNK
     Dates: start: 201003, end: 201702
  126. TRAZODONE HCL [Concomitant]
     Active Substance: TRAZODONE HYDROCHLORIDE
     Indication: Depression
     Dosage: UNK
     Dates: start: 201411
  127. TRAZODONE HCL [Concomitant]
     Active Substance: TRAZODONE HYDROCHLORIDE
     Dosage: UNK
     Dates: start: 201604
  128. TRAZODONE HCL [Concomitant]
     Active Substance: TRAZODONE HYDROCHLORIDE
     Dosage: UNK
     Dates: start: 201608
  129. VICTOZA [Concomitant]
     Active Substance: LIRAGLUTIDE
     Indication: Diabetes mellitus
     Dosage: UNK
     Dates: start: 201307, end: 201405
  130. VITAMIN D2 [Concomitant]
     Active Substance: ERGOCALCIFEROL
     Indication: Vitamin supplementation
     Dosage: UNK
     Dates: start: 201201, end: 201401
  131. AMOXICILLIN\CLAVULANATE POTASSIUM [Concomitant]
     Active Substance: AMOXICILLIN\CLAVULANATE POTASSIUM
     Dosage: UNK
     Dates: start: 201201
  132. AMOXICILLIN\CLAVULANATE POTASSIUM [Concomitant]
     Active Substance: AMOXICILLIN\CLAVULANATE POTASSIUM
     Dosage: UNK
     Dates: start: 201303
  133. HYDROCODONE BITARTRATE AND ACETAMINOPHEN [Concomitant]
     Active Substance: ACETAMINOPHEN\HYDROCODONE BITARTRATE
     Indication: Analgesic therapy
     Dosage: UNK
     Dates: start: 200908, end: 201002
  134. HYOSCYAMINE [Concomitant]
     Active Substance: HYOSCYAMINE
     Dosage: UNK
     Dates: start: 200706, end: 200708
  135. HYOSCYAMINE [Concomitant]
     Active Substance: HYOSCYAMINE
     Dosage: UNK
     Dates: start: 201706
  136. AMOXICILLIN\CLAVULANIC ACID [Concomitant]
     Active Substance: AMOXICILLIN\CLAVULANIC ACID
     Dosage: UNK
     Dates: start: 201607
  137. AMOXICILLIN\CLAVULANIC ACID [Concomitant]
     Active Substance: AMOXICILLIN\CLAVULANIC ACID
     Dosage: UNK
     Dates: start: 201612, end: 201701
  138. LIDOCAINE [Concomitant]
     Active Substance: LIDOCAINE
     Indication: Analgesic therapy
     Dosage: UNK
     Dates: start: 201403, end: 201505
  139. ZIPSOR [Concomitant]
     Active Substance: DICLOFENAC POTASSIUM
     Indication: Analgesic therapy
     Dosage: UNK
     Dates: start: 200110
  140. ZIPSOR [Concomitant]
     Active Substance: DICLOFENAC POTASSIUM
     Dosage: UNK
     Dates: start: 200910
  141. ZIPSOR [Concomitant]
     Active Substance: DICLOFENAC POTASSIUM
     Dosage: UNK
     Dates: start: 201105, end: 201301
  142. ZOLPIDEM TARTRATE [Concomitant]
     Active Substance: ZOLPIDEM TARTRATE
     Indication: Insomnia
     Dosage: UNK
     Dates: start: 201012
  143. ZONISAMIDE [Concomitant]
     Active Substance: ZONISAMIDE
     Indication: Migraine
     Dosage: UNK
     Dates: start: 201406, end: 201412

REACTIONS (2)
  - Chronic kidney disease [Not Recovered/Not Resolved]
  - Acute kidney injury [Not Recovered/Not Resolved]

NARRATIVE: CASE EVENT DATE: 20130219
